FAERS Safety Report 6675819-7 (Version None)
Quarter: 2010Q2

REPORT INFORMATION
  Report Type: 
  Country: None (occurrence: None)
  Receive Date: 20100412
  Receipt Date: 20100331
  Transmission Date: 20101027
  Serious: Yes (Hospitalization)
  Sender: FDA-Public Use
  Company Number: US-BIOGENIDEC-2009BI041369

PATIENT
  Sex: Female
  Weight: 77 kg

DRUGS (1)
  1. AVONEX [Suspect]
     Indication: MULTIPLE SCLEROSIS
     Route: 030
     Dates: start: 20091020

REACTIONS (7)
  - CEREBROVASCULAR ACCIDENT [None]
  - COORDINATION ABNORMAL [None]
  - DISSOCIATION [None]
  - FATIGUE [None]
  - INFLUENZA LIKE ILLNESS [None]
  - PARTIAL SEIZURES [None]
  - TRANSIENT ISCHAEMIC ATTACK [None]
